FAERS Safety Report 8816081 (Version 2)
Quarter: 2012Q4

REPORT INFORMATION
  Report Type: 
  Country: ES (occurrence: ES)
  Receive Date: 20120928
  Receipt Date: 20121008
  Transmission Date: 20130627
  Serious: Yes (Other)
  Sender: FDA-Public Use
  Company Number: ES-PFIZER INC-2012238359

PATIENT
  Age: 50 Year
  Sex: Male

DRUGS (8)
  1. LYRICA [Suspect]
     Indication: NEURALGIA
     Dosage: 150 mg, UNK
     Dates: start: 201202, end: 201208
  2. CARDURAN [Concomitant]
     Dosage: 4 mg, UNK
  3. DILUTOL [Concomitant]
     Dosage: 10 mg, UNK
  4. OMEPRAZOL [Concomitant]
     Dosage: 20 mg, UNK
  5. SIMVASTATIN [Concomitant]
     Dosage: 10 mg, UNK
  6. ASPIRINE [Concomitant]
     Dosage: 200 mg, UNK
  7. KARVEA [Concomitant]
     Dosage: 300 mg, UNK
  8. TRANXILIUM [Concomitant]

REACTIONS (10)
  - Choking [Not Recovered/Not Resolved]
  - Dizziness [Not Recovered/Not Resolved]
  - Sense of oppression [Not Recovered/Not Resolved]
  - Anxiety [Not Recovered/Not Resolved]
  - Drug ineffective [Not Recovered/Not Resolved]
  - Diarrhoea [Recovered/Resolved]
  - Depressed mood [Not Recovered/Not Resolved]
  - Dyspnoea [Not Recovered/Not Resolved]
  - Libido decreased [Not Recovered/Not Resolved]
  - Erectile dysfunction [Not Recovered/Not Resolved]
